FAERS Safety Report 5553329-8 (Version None)
Quarter: 2007Q4

REPORT INFORMATION
  Report Type: 
  Country: None (occurrence: None)
  Receive Date: 20071207
  Receipt Date: 20071207
  Transmission Date: 20080405
  Serious: Yes (Other)
  Sender: FDA-Public Use
  Company Number: None

PATIENT
  Age: 70 Year
  Sex: Female
  Weight: 48.5349 kg

DRUGS (2)
  1. TICLOPIDINE HCL [Suspect]
     Indication: CAROTID ARTERY STENOSIS
     Dosage: 250MG BID PO
     Route: 048
     Dates: start: 20020619
  2. TICLOPIDINE HCL [Suspect]
     Indication: CEREBROVASCULAR ACCIDENT
     Dosage: 250MG BID PO
     Route: 048
     Dates: start: 20020619

REACTIONS (3)
  - DIZZINESS [None]
  - NAUSEA [None]
  - VOMITING [None]
